FAERS Safety Report 23367094 (Version 1)
Quarter: 2024Q1

REPORT INFORMATION
  Report Type: Spontaneous
  Country: US (occurrence: None)
  Receive Date: 20240104
  Receipt Date: 20240104
  Transmission Date: 20240410
  Serious: Yes (Life-Threatening)
  Sender: FDA-Public Use
  Company Number: None

PATIENT
  Age: 77 Year
  Sex: Female
  Weight: 53.4 kg

DRUGS (1)
  1. CEFAZOLIN [Suspect]
     Active Substance: CEFAZOLIN
     Indication: Infection
     Dosage: 2 G GRAM(S) ONCE INTRAVENOUS?
     Route: 042
     Dates: start: 20231014, end: 20231014

REACTIONS (3)
  - Dyspnoea [None]
  - Wheezing [None]
  - Post procedural complication [None]

NARRATIVE: CASE EVENT DATE: 20231014
